FAERS Safety Report 6657293-X (Version None)
Quarter: 2010Q1

REPORT INFORMATION
  Report Type: 
  Country: None (occurrence: None)
  Receive Date: 20100330
  Receipt Date: 20100325
  Transmission Date: 20100710
  Serious: Yes (Death)
  Sender: FDA-Public Use
  Company Number: ZA-BRISTOL-MYERS SQUIBB COMPANY-14651434

PATIENT
  Age: 66 Year
  Sex: Female

DRUGS (8)
  1. ABATACEPT [Suspect]
     Indication: RHEUMATOID ARTHRITIS
     Route: 058
     Dates: start: 20090109, end: 20090525
  2. PLACEBO [Suspect]
     Indication: RHEUMATOID ARTHRITIS
     Route: 042
     Dates: start: 20090109, end: 20090525
  3. METHOTREXATE [Suspect]
     Indication: RHEUMATOID ARTHRITIS
     Dates: start: 19980101
  4. ARTHROTEC [Concomitant]
     Dates: start: 19980101, end: 20090603
  5. OSTEOBON [Concomitant]
     Dates: start: 20080122, end: 20090603
  6. AMLOC [Concomitant]
     Dates: start: 20070104, end: 20090603
  7. PREXUM PLUS [Concomitant]
     Dates: start: 20080422, end: 20090603
  8. ELTROXIN [Concomitant]
     Dates: start: 20080703, end: 20090603

REACTIONS (1)
  - STAPHYLOCOCCAL SEPSIS [None]
